FAERS Safety Report 7534741-4 (Version None)
Quarter: 2011Q2

REPORT INFORMATION
  Report Type: 
  Country: None (occurrence: None)
  Receive Date: 20110609
  Receipt Date: 20110606
  Transmission Date: 20111010
  Serious: Yes (Hospitalization)
  Sender: FDA-Public Use
  Company Number: US-BRISTOL-MYERS SQUIBB COMPANY-15731466

PATIENT
  Age: 57 Year
  Sex: Male

DRUGS (7)
  1. BLINDED: BEVACIZUMAB [Suspect]
     Indication: NON-SMALL CELL LUNG CANCER
     Route: 042
     Dates: start: 20110222, end: 20110314
  2. PLACEBO [Suspect]
     Indication: NON-SMALL CELL LUNG CANCER
     Route: 042
     Dates: start: 20110222, end: 20110314
  3. OMEPRAZOLE [Concomitant]
     Route: 048
     Dates: start: 20110118
  4. BLINDED: CT-322 [Suspect]
     Indication: NON-SMALL CELL LUNG CANCER
     Dosage: 02FEB11-3MAY11
     Route: 042
     Dates: start: 20110222, end: 20110314
  5. CARBOPLATIN [Suspect]
     Indication: NON-SMALL CELL LUNG CANCER
     Route: 042
     Dates: start: 20110222, end: 20110314
  6. PACLITAXEL [Suspect]
     Indication: NON-SMALL CELL LUNG CANCER
     Route: 042
     Dates: start: 20110222, end: 20110314
  7. DURAGESIC-100 [Concomitant]
     Dosage: 12MCG FROM 12APR11
     Dates: start: 20110324

REACTIONS (2)
  - DYSPNOEA [None]
  - HAEMOGLOBIN DECREASED [None]
